FAERS Safety Report 8983725 (Version 3)
Quarter: 2013Q2

REPORT INFORMATION
  Report Type: Spontaneous
  Country: FI (occurrence: FI)
  Receive Date: 20121224
  Receipt Date: 20130405
  Transmission Date: 20140414
  Serious: Yes (Hospitalization, Other)
  Sender: FDA-Public Use
  Company Number: PHHY2012FI116188

PATIENT
  Age: 53 Year
  Sex: Male

DRUGS (2)
  1. LEPONEX [Suspect]
     Indication: SCHIZOPHRENIA, PARANOID TYPE
     Dosage: 700 MG, PER DAY
     Route: 048
     Dates: end: 20121205
  2. PRIMASPAN [Concomitant]
     Dosage: 100 MG, QD

REACTIONS (4)
  - White blood cell count decreased [Recovered/Resolved]
  - Neutropenia [Recovered/Resolved]
  - B-cell lymphoma [Unknown]
  - Bone marrow failure [Unknown]
